FAERS Safety Report 9159447 (Version 1)
Quarter: 2013Q1

REPORT INFORMATION
  Report Type: Spontaneous
  Country: US (occurrence: None)
  Receive Date: 20130214
  Receipt Date: 20130214
  Transmission Date: 20140127
  Serious: Yes (Hospitalization)
  Sender: FDA-Public Use
  Company Number: PR-AE13-000083

PATIENT
  Age: 60 Year
  Sex: Male

DRUGS (2)
  1. GOODYS [Suspect]
     Indication: ANALGESIC THERAPY
     Dosage: 2 PACKETS-QD- ORALLY
     Route: 048
     Dates: start: 20120306, end: 20120311
  2. XANAX (ALPRAZOLAM) [Concomitant]

REACTIONS (3)
  - Loss of consciousness [None]
  - Gastrointestinal haemorrhage [None]
  - Gastric perforation [None]
